FAERS Safety Report 8936603 (Version 1)
Quarter: 2012Q4

REPORT INFORMATION
  Report Type: 
  Country: US (occurrence: US)
  Receive Date: 20121130
  Receipt Date: 20121130
  Transmission Date: 20130627
  Serious: Yes (Hospitalization, Congenital Anomaly, Other)
  Sender: FDA-Public Use
  Company Number: US-PFIZER INC-2012297551

PATIENT
  Sex: Female
  Weight: 3.3 kg

DRUGS (5)
  1. SERTRALINE HCL [Suspect]
     Dosage: 50 mg, UNK
     Route: 064
     Dates: start: 20110213
  2. PRENATAL VITAMINS [Concomitant]
     Dosage: UNK
     Route: 064
  3. NIFEDIPINE [Concomitant]
     Dosage: 90 mg, UNK
     Route: 064
  4. TYLENOL WITH CODEINE [Concomitant]
     Dosage: UNK
     Route: 064
  5. ALBUTEROL [Concomitant]
     Dosage: UNK
     Route: 064

REACTIONS (7)
  - Maternal exposure timing unspecified [Unknown]
  - Ventricular septal defect [Unknown]
  - Patent ductus arteriosus [Unknown]
  - Atrial septal defect [Unknown]
  - Atrial septal defect [Unknown]
  - Neonatal respiratory distress syndrome [Unknown]
  - Sepsis neonatal [Unknown]
